FAERS Safety Report 6087143-4 (Version None)
Quarter: 2009Q1

REPORT INFORMATION
  Report Type: 
  Country: None (occurrence: None)
  Receive Date: 20090213
  Receipt Date: 20090128
  Transmission Date: 20090719
  Serious: Yes (Other)
  Sender: FDA-Public Use
  Company Number: B0557832A

PATIENT
  Sex: 0

DRUGS (6)
  1. BUSULPHAN (FORMULATION UNKNOWN) (GENERIC) (BUSULFAN) [Suspect]
     Indication: SICKLE CELL ANAEMIA
  2. CYCLOPHOSPHAMIDE [Concomitant]
  3. ANTITHYMOCYTE IG [Concomitant]
  4. METHOTREXATE [Concomitant]
  5. CYCLOSPORINE [Concomitant]
  6. ANTICONVULSANT [Concomitant]

REACTIONS (1)
  - INTERSTITIAL LUNG DISEASE [None]
